FAERS Safety Report 4481853-8 (Version None)
Quarter: 2004Q4

REPORT INFORMATION
  Report Type: 
  Country: None (occurrence: None)
  Receive Date: 20041022
  Receipt Date: 20041014
  Transmission Date: 20050328
  Serious: Yes (Hospitalization, Other)
  Sender: FDA-Public Use
  Company Number: US-AMGEN-US095730

PATIENT
  Sex: Male

DRUGS (3)
  1. EPOGEN [Suspect]
     Indication: ANAEMIA
  2. PREDNISONE [Concomitant]
  3. CELLCEPT [Concomitant]

REACTIONS (3)
  - COOMBS TEST POSITIVE [None]
  - HAEMOLYSIS [None]
  - SPLENECTOMY [None]
